FAERS Safety Report 8179250-7 (Version None)
Quarter: 2012Q1

REPORT INFORMATION
  Report Type: 
  Country: None (occurrence: None)
  Receive Date: 20120227
  Receipt Date: 20120216
  Transmission Date: 20120608
  Serious: Yes (Death)
  Sender: FDA-Public Use
  Company Number: DKLU1077057

PATIENT

DRUGS (6)
  1. DAUNORUBICIN HYDROCHLORIDE [Suspect]
     Indication: LYMPHOCYTIC LEUKAEMIA
     Dosage: 40 MG/M2 MILLIGRAM(S)/SQ.METER, DAYS 8, 15 AND 22, INTRAVENOUS DRIP
     Route: 041
  2. ELSPAR (ASPARAGINASE) (INTRAVENOUS INFUSION) [Suspect]
     Indication: ACUTE LYMPHOCYTIC LEUKAEMIA
     Dosage: 6000IU/M2 DAYS 8,10,12,15,17,1922,24,26, INTRAVENOUS DRIP
     Route: 041
  3. PREDNISONE [Suspect]
     Indication: ACUTE LYMPHOCYTIC LEUKAEMIA
     Dosage: 40 MG/M2 MILLIGRAM(S)/SQ.METER, DIVIDED IN TWO DOSES; DAYS 8 TO 28, ORAL
     Route: 048
  4. CYCLOPHOSPHAMIDE [Suspect]
     Indication: LYMPHOCYTIC LEUKAEMIA
     Dosage: 1000 MG/M2 MILLIGRAM(S), /SQ. METER, DAY 8, INTRAVENOUS DRIP
     Route: 041
  5. VINCRISTINE [Suspect]
     Indication: ACUTE LYMPHOCYTIC LEUKAEMIA
     Dosage: 1.5 MG/M2 MILLIGRAM(S)/SQ.METER, DAYS 8,15,22,29, INTRAVENOUS DRIP
     Route: 041
  6. METHOTREXATE SODIUM [Suspect]
     Indication: ACUTE LYMPHOCYTIC LEUKAEMIA
     Dosage: 15 MG MILLIGRAM(S) DAYS 8, 15 (22 WHEN CNS POSITIVE), INTRATHECAL
     Route: 037

REACTIONS (1)
  - SEPTIC SHOCK [None]
